FAERS Safety Report 4264166-9 (Version None)
Quarter: 2004Q1

REPORT INFORMATION
  Report Type: 
  Country: None (occurrence: None)
  Receive Date: 20040102
  Receipt Date: 20031223
  Transmission Date: 20041129
  Serious: Yes (Other)
  Sender: FDA-Public Use
  Company Number: US-JNJFOC-20030904476

PATIENT
  Age: 19 Year
  Sex: Female
  Weight: 62.1428 kg

DRUGS (6)
  1. REMICADE [Suspect]
     Indication: CROHN'S DISEASE
     Dosage: 5 MG/KG, 1 IN 1 DAY, INTRAVENOUS
     Route: 042
     Dates: start: 20020101
  2. REMICADE [Suspect]
     Indication: CROHN'S DISEASE
     Dosage: 5 MG/KG, 1 IN 1 DAY, INTRAVENOUS
     Route: 042
     Dates: start: 20030801
  3. MERCAPTOPURINE [Concomitant]
  4. ACTONEL [Concomitant]
  5. NEXIUM [Concomitant]
  6. BACTROBAN (MUPIROCIN) [Concomitant]

REACTIONS (1)
  - SCLERITIS [None]
